FAERS Safety Report 7668171-1 (Version None)
Quarter: 2011Q3

REPORT INFORMATION
  Report Type: 
  Country: None (occurrence: None)
  Receive Date: 20110808
  Receipt Date: 20110804
  Transmission Date: 20111222
  Serious: Yes (Death, Other)
  Sender: FDA-Public Use
  Company Number: PHEH2011US00760

PATIENT
  Sex: Male

DRUGS (15)
  1. ZOLOFT [Concomitant]
     Dosage: 25 MG, UNK
  2. TRAZODONE HCL [Concomitant]
     Dosage: 50 MG, UNK
  3. AMINOCAPR AC [Concomitant]
     Dosage: 25 %, UNK
  4. EXJADE [Suspect]
     Dosage: 500 MG, EVERY DAY
     Route: 048
  5. ZOFRAN [Concomitant]
     Dosage: 24 MG, UNK
  6. PRILOSEC [Concomitant]
     Dosage: 10 MG, UNK
  7. AMPHOTERICIN B [Concomitant]
     Dosage: 50 MG, UNK
  8. IMODIUM [Concomitant]
  9. METRON [Concomitant]
     Dosage: 500 MG, UNK
  10. ACYCLOVIR [Concomitant]
     Dosage: 200 MG, UNK
  11. TYLENOL-500 [Concomitant]
     Dosage: 650 MG, UNK
  12. FOLIC ACID [Concomitant]
     Dosage: 20 MG, UNK
  13. DILAUDID [Concomitant]
     Dosage: 2 MG, UNK
  14. MULTI-VITAMINS [Concomitant]
  15. SIMETHICONE [Concomitant]
     Dosage: 125 MG, UNK

REACTIONS (2)
  - DEATH [None]
  - GENERAL PHYSICAL HEALTH DETERIORATION [None]
